FAERS Safety Report 9213142 (Version 1)
Quarter: 2013Q1

REPORT INFORMATION
  Report Type: Spontaneous
  Country: US (occurrence: None)
  Receive Date: 20120820
  Receipt Date: 20120820
  Transmission Date: 20140127
  Serious: No
  Sender: FDA-Public Use
  Company Number: 1000036950

PATIENT
  Age: 45 Year
  Sex: Female

DRUGS (9)
  1. VIIBRYD [Suspect]
     Indication: DEPRESSION
     Dosage: 10 MG (10 MG, 1 IN 1 D), ORAL
     Route: 048
     Dates: start: 20120630
  2. WELLBUTRIN XR (BUPROPION HYDROCHLORIDE) (BUPROPION HYDROCHLORIDE) [Concomitant]
  3. LISINPRIL (LISINOPRIL) (LISINOPRIL) [Concomitant]
  4. ATORVASTATIN) (ATORVASTATIN) (ATORVASTATIN) [Concomitant]
  5. KLONOPIN [Concomitant]
  6. SYNTHROID (LEVOTHYROXINE SODIUM) (LEVOTHYROXINE SODIUM( [Concomitant]
  7. BABY ASPIRIN (ACETYLSALICYLIC ACID) (ACETYLSALICYLIC ACID) [Concomitant]
  8. MAGNESIUM (MAGNESIUM) (MAGNESIUM) [Concomitant]
  9. HORMONE REPLACEMENT THERAPY (HORMONE REPLACEMENT THERAPY) (HORMONE REPLACEMENT THERAPY) [Concomitant]

REACTIONS (3)
  - Crying [None]
  - Depression [None]
  - Anxiety [None]
